FAERS Safety Report 21582842 (Version 1)
Quarter: 2022Q4

REPORT INFORMATION
  Report Type: Spontaneous
  Country: CA (occurrence: CA)
  Receive Date: 20221111
  Receipt Date: 20221111
  Transmission Date: 20230113
  Serious: Yes (Hospitalization)
  Sender: FDA-Public Use
  Company Number: CA-BAYER-2022A152558

PATIENT
  Age: 87 Year
  Sex: Male

DRUGS (11)
  1. POLYETHYLENE GLYCOL 3350 [Suspect]
     Active Substance: POLYETHYLENE GLYCOL 3350
     Dosage: UNK
  2. AMPICILLIN [Suspect]
     Active Substance: AMPICILLIN
     Indication: Bacteraemia
     Dosage: 2 G, 1 EVERY 4 HOURS
     Route: 030
  3. GLYCERIN [Concomitant]
     Active Substance: GLYCERIN
  4. ESCITALOPRAM [Concomitant]
     Active Substance: ESCITALOPRAM OXALATE
  5. METOPROLOL [Concomitant]
     Active Substance: METOPROLOL
  6. VITAMIN D NOS [Concomitant]
     Active Substance: VITAMIN D NOS
  7. ACETAMINOPHEN [Concomitant]
     Active Substance: ACETAMINOPHEN
  8. ELIQUIS [Concomitant]
     Active Substance: APIXABAN
  9. QUETIAPINE [Concomitant]
     Active Substance: QUETIAPINE
  10. SENNA [Concomitant]
     Active Substance: SENNA LEAF\SENNOSIDES\SENNOSIDES A AND B
  11. MELATONIN [Concomitant]
     Active Substance: MELATONIN

REACTIONS (1)
  - Clostridium test positive [Recovering/Resolving]
